FAERS Safety Report 10868731 (Version 2)
Quarter: 2015Q1

REPORT INFORMATION
  Report Type: Spontaneous
  Country: BR (occurrence: BR)
  Receive Date: 20150225
  Receipt Date: 20150306
  Transmission Date: 20150721
  Serious: Yes (Other)
  Sender: FDA-Public Use
  Company Number: BR-PFIZER INC-2015067794

PATIENT
  Sex: Female

DRUGS (1)
  1. DALACIN C [Suspect]
     Active Substance: CLINDAMYCIN PHOSPHATE
     Dosage: UNK, 3X/DAY (EVERY 8 HOURS)
     Dates: start: 201502

REACTIONS (3)
  - Diarrhoea haemorrhagic [Recovering/Resolving]
  - Haemorrhage [Recovering/Resolving]
  - Abdominal pain [Not Recovered/Not Resolved]

NARRATIVE: CASE EVENT DATE: 201502
